FAERS Safety Report 5159510-4 (Version None)
Quarter: 2006Q4

REPORT INFORMATION
  Report Type: 
  Country: None (occurrence: None)
  Receive Date: 20061129
  Receipt Date: 20061117
  Transmission Date: 20070319
  Serious: Yes (Death)
  Sender: FDA-Public Use
  Company Number: PHHO2006JP19480

PATIENT
  Age: 68 Year
  Sex: Male
  Weight: 59 kg

DRUGS (8)
  1. DIOVAN [Suspect]
     Indication: HYPERTENSION
     Dosage: 40 MG, QD
     Route: 048
     Dates: start: 20030728, end: 20051218
  2. ASPIRIN [Concomitant]
  3. CONIEL [Concomitant]
  4. ALDACTONE [Concomitant]
  5. DIART [Concomitant]
  6. ARTIST [Concomitant]
  7. DIGOSIN [Concomitant]
  8. WARFARIN SODIUM [Concomitant]

REACTIONS (1)
  - CEREBRAL HAEMORRHAGE [None]
